FAERS Safety Report 12645358 (Version 1)
Quarter: 2016Q3

REPORT INFORMATION
  Report Type: Spontaneous
  Country: US (occurrence: US)
  Receive Date: 20160811
  Receipt Date: 20160811
  Transmission Date: 20161109
  Serious: No
  Sender: FDA-Public Use
  Company Number: US-JAZZ-2016-US-004542

PATIENT
  Sex: Male

DRUGS (31)
  1. CYCLOBENZAPRINE ER [Concomitant]
  2. DEXTROAMPHETAMINE. [Concomitant]
     Active Substance: DEXTROAMPHETAMINE
  3. FLUCONAZOLE. [Concomitant]
     Active Substance: FLUCONAZOLE
  4. ZOLOFT [Concomitant]
     Active Substance: SERTRALINE HYDROCHLORIDE
  5. LISINOPRIL/HCTZ [Concomitant]
     Active Substance: HYDROCHLOROTHIAZIDE\LISINOPRIL
  6. ABILIFY [Concomitant]
     Active Substance: ARIPIPRAZOLE
  7. INTERMEZZO [Concomitant]
     Active Substance: ZOLPIDEM TARTRATE
  8. DOXEPIN HCL [Concomitant]
     Active Substance: DOXEPIN HYDROCHLORIDE
  9. HYDROCORTISONE ACETATE. [Concomitant]
     Active Substance: HYDROCORTISONE ACETATE
  10. XYREM [Suspect]
     Active Substance: SODIUM OXYBATE
     Dosage: 4 G, BID
     Route: 048
     Dates: start: 201603
  11. LUNESTA [Concomitant]
     Active Substance: ESZOPICLONE
  12. AMBIEN CR [Concomitant]
     Active Substance: ZOLPIDEM TARTRATE
  13. GABAPENTIN. [Concomitant]
     Active Substance: GABAPENTIN
  14. LIOTHYRONINE SODIUM. [Concomitant]
     Active Substance: LIOTHYRONINE SODIUM
  15. BACLOFEN. [Concomitant]
     Active Substance: BACLOFEN
  16. TRAZODONE HYDROCHLORIDE. [Concomitant]
     Active Substance: TRAZODONE HYDROCHLORIDE
  17. XYREM [Suspect]
     Active Substance: SODIUM OXYBATE
     Indication: SLEEP DISORDER
     Dosage: 3 G, BID
     Route: 048
     Dates: start: 200511, end: 2006
  18. SOMA [Concomitant]
     Active Substance: CARISOPRODOL
  19. CHORIONIC GONADOTROPIN [Concomitant]
     Active Substance: CHORIOGONADOTROPIN ALFA
  20. DIAZEPAM. [Concomitant]
     Active Substance: DIAZEPAM
  21. VITAMIN B12 [Concomitant]
     Active Substance: CYANOCOBALAMIN
  22. FLORINEF ACETATE [Concomitant]
     Active Substance: FLUDROCORTISONE ACETATE
  23. XYREM [Suspect]
     Active Substance: SODIUM OXYBATE
     Dosage: DOSE ADJUSTMENTS
     Route: 048
  24. AMBIEN [Concomitant]
     Active Substance: ZOLPIDEM TARTRATE
  25. TOPAMAX [Concomitant]
     Active Substance: TOPIRAMATE
  26. LISINOPRIL. [Concomitant]
     Active Substance: LISINOPRIL
  27. PROPRANOLOL ER [Concomitant]
  28. KLONOPIN [Concomitant]
     Active Substance: CLONAZEPAM
  29. CYMBALTA [Concomitant]
     Active Substance: DULOXETINE HYDROCHLORIDE
  30. SONATA [Concomitant]
     Active Substance: ZALEPLON
  31. VICTOZA 2-PAK [Concomitant]

REACTIONS (2)
  - Therapeutic response unexpected [Unknown]
  - Pre-existing condition improved [Unknown]
